FAERS Safety Report 5702080-X (Version None)
Quarter: 2008Q2

REPORT INFORMATION
  Report Type: 
  Country: None (occurrence: None)
  Receive Date: 20080411
  Receipt Date: 20070906
  Transmission Date: 20081010
  Serious: No
  Sender: FDA-Public Use
  Company Number: US-ABBOTT-07P-163-0416370-00

PATIENT
  Sex: Female
  Weight: 56.75 kg

DRUGS (3)
  1. DEPAKOTE [Suspect]
     Indication: DRUG USE FOR UNKNOWN INDICATION
     Route: 048
     Dates: start: 20061001, end: 20070601
  2. DEPAKOTE [Suspect]
     Dates: start: 20040101, end: 20060101
  3. DEPAKOTE [Suspect]
     Dates: start: 19920101

REACTIONS (6)
  - ALOPECIA [None]
  - ANXIETY [None]
  - MALAISE [None]
  - MENSTRUAL DISORDER [None]
  - MOOD ALTERED [None]
  - WEIGHT INCREASED [None]
